FAERS Safety Report 6366447-1 (Version None)
Quarter: 2009Q3

REPORT INFORMATION
  Report Type: 
  Country: None (occurrence: None)
  Receive Date: 20090921
  Receipt Date: 20090911
  Transmission Date: 20100115
  Serious: Yes (Other)
  Sender: FDA-Public Use
  Company Number: DE-ASTRAZENECA-2009SE08658

PATIENT
  Age: 31 Year
  Sex: Male
  Weight: 58 kg

DRUGS (2)
  1. PROPOFOL [Suspect]
     Indication: HAEMORRHOID OPERATION
     Route: 042
     Dates: start: 20090313, end: 20090313
  2. TRILEPTAL [Concomitant]

REACTIONS (6)
  - BALANCE DISORDER [None]
  - CHEST PAIN [None]
  - DYSKINESIA [None]
  - EPILEPSY [None]
  - PAIN IN EXTREMITY [None]
  - SYNCOPE [None]
